FAERS Safety Report 7956615-7 (Version None)
Quarter: 2011Q4

REPORT INFORMATION
  Report Type: 
  Country: None (occurrence: None)
  Receive Date: 20111205
  Receipt Date: 20111130
  Transmission Date: 20120403
  Serious: Yes (Death)
  Sender: FDA-Public Use
  Company Number: PHHY2011VE105305

PATIENT
  Sex: Female

DRUGS (2)
  1. CYCLOKAPRON [Concomitant]
     Dosage: 500 MG, UNK
  2. EXJADE [Suspect]
     Route: 048
     Dates: start: 20111001, end: 20111116

REACTIONS (1)
  - DEATH [None]
